FAERS Safety Report 11505851 (Version 1)
Quarter: 2015Q3

REPORT INFORMATION
  Report Type: Spontaneous
  Country: US (occurrence: US)
  Receive Date: 20150915
  Receipt Date: 20150915
  Transmission Date: 20151125
  Serious: No
  Sender: FDA-Public Use
  Company Number: US-ROCHE-785479

PATIENT
  Sex: Female

DRUGS (2)
  1. PEGASYS [Suspect]
     Active Substance: PEGINTERFERON ALFA-2A
     Indication: CHRONIC HEPATITIS C
     Dosage: DOSE REPORTED AS : 180 UG/WEEK
     Route: 058
  2. RIBASPHERE RIBAPAK [Suspect]
     Active Substance: RIBAVIRIN
     Indication: CHRONIC HEPATITIS C
     Dosage: DOSE REPORTED AS 800MG/DAY DIVIDED DOSES ORALLY
     Route: 048

REACTIONS (4)
  - Fatigue [Unknown]
  - Blister [Unknown]
  - Insomnia [Unknown]
  - Anxiety [Unknown]
